FAERS Safety Report 6371264-2 (Version None)
Quarter: 2009Q3

REPORT INFORMATION
  Report Type: 
  Country: None (occurrence: None)
  Receive Date: 20090923
  Receipt Date: 20070726
  Transmission Date: 20100115
  Serious: Yes (Hospitalization, Other)
  Sender: FDA-Public Use
  Company Number: US-ASTRAZENECA-2007UW02024

PATIENT
  Age: 17192 Day
  Sex: Male
  Weight: 102.5 kg

DRUGS (12)
  1. SEROQUEL [Suspect]
     Indication: BIPOLAR DISORDER
     Route: 048
     Dates: start: 20030101
  2. SEROQUEL [Suspect]
     Dosage: 300 MG-400 MG DAILY
     Route: 048
     Dates: start: 20030829
  3. ZYPREXA [Concomitant]
     Route: 048
     Dates: start: 20030329
  4. PREVACID [Concomitant]
     Indication: GASTROOESOPHAGEAL REFLUX DISEASE
     Route: 048
     Dates: start: 20021218
  5. LISINOPRIL [Concomitant]
     Indication: HYPERTENSION
     Dosage: 5MG-10MG DAILY
     Route: 048
     Dates: start: 20040913
  6. COMBIVENT [Concomitant]
     Indication: CHRONIC OBSTRUCTIVE PULMONARY DISEASE
     Dosage: 1 PUFF TWO TIMES A DAY
     Route: 045
     Dates: start: 20050628
  7. DOXEPIN HCL [Concomitant]
     Indication: BIPOLAR DISORDER
     Dosage: 100MG-200MG DAILY
     Route: 048
     Dates: start: 20050628
  8. NORVASC [Concomitant]
     Route: 048
     Dates: start: 20050627
  9. CYMBALTA [Concomitant]
     Indication: DEPRESSION
     Dosage: 60MG-100MG AT BEDTIME
     Route: 048
     Dates: start: 20050627
  10. XOPENEX [Concomitant]
     Indication: LUNG DISORDER
     Dosage: AS REQUIRED
     Route: 048
     Dates: start: 20040225
  11. ADVAIR DISKUS 100/50 [Concomitant]
     Indication: CHRONIC OBSTRUCTIVE PULMONARY DISEASE
     Dosage: 1 PUFF TWO-THREE TIMES DAILY
     Route: 045
     Dates: start: 20040225
  12. CLONIDINE [Concomitant]
     Route: 048
     Dates: start: 20040223

REACTIONS (5)
  - DIABETES MELLITUS [None]
  - HAEMATURIA [None]
  - HYPERGLYCAEMIA [None]
  - RENAL FAILURE ACUTE [None]
  - WEIGHT INCREASED [None]
